FAERS Safety Report 13550372 (Version 3)
Quarter: 2017Q3

REPORT INFORMATION
  Report Type: Spontaneous
  Country: JP (occurrence: JP)
  Receive Date: 20170516
  Receipt Date: 20170810
  Transmission Date: 20171127
  Serious: Yes (Death)
  Sender: FDA-Public Use
  Company Number: JP-SA-2017SA087976

PATIENT
  Age: 55 Year
  Sex: Male
  Weight: 120 kg

DRUGS (2)
  1. PRALUENT [Suspect]
     Active Substance: ALIROCUMAB
     Indication: TYPE IIA HYPERLIPIDAEMIA
     Route: 058
     Dates: start: 201701, end: 201705
  2. ALIROCUMAB PREFILLED PEN [Suspect]
     Active Substance: ALIROCUMAB
     Indication: TYPE IIA HYPERLIPIDAEMIA
     Dates: start: 201701, end: 201705

REACTIONS (5)
  - Oedema peripheral [Fatal]
  - Cardiac failure [Fatal]
  - High density lipoprotein decreased [Unknown]
  - Dyspnoea [Fatal]
  - Blood glucose increased [Fatal]

NARRATIVE: CASE EVENT DATE: 20170502
